FAERS Safety Report 5880673-7 (Version None)
Quarter: 2008Q3

REPORT INFORMATION
  Report Type: 
  Country: None (occurrence: None)
  Receive Date: 20080911
  Receipt Date: 20080827
  Transmission Date: 20090109
  Serious: Yes (Death)
  Sender: FDA-Public Use
  Company Number: MEDI-0006382

PATIENT
  Sex: 0

DRUGS (1)
  1. SYNAGIS [Suspect]
     Dosage: EARLY OCT 2007 - EARLY OCT 2007
     Dates: start: 20071001, end: 20071001

REACTIONS (2)
  - CEREBROHEPATORENAL SYNDROME [None]
  - DISEASE PROGRESSION [None]
